FAERS Safety Report 8557692 (Version 3)
Quarter: 2016Q1

REPORT INFORMATION
  Report Type: Spontaneous
  Country: DE (occurrence: DE)
  Receive Date: 20120511
  Receipt Date: 20160205
  Transmission Date: 20160526
  Serious: Yes (Other)
  Sender: FDA-Public Use
  Company Number: DE-BRISTOL-MYERS SQUIBB COMPANY-16565137

PATIENT
  Age: 35 Year
  Sex: Female

DRUGS (9)
  1. MORPHINE SULFATE. [Suspect]
     Active Substance: MORPHINE SULFATE
     Indication: PAIN
     Dosage: 40 MG, QD
     Route: 048
     Dates: start: 20091013
  2. FOLIC ACID. [Concomitant]
     Active Substance: FOLIC ACID
     Indication: VITAMIN SUPPLEMENTATION
     Dosage: UNK
     Route: 048
  3. DOLANTIN [Suspect]
     Active Substance: MEPERIDINE
     Indication: PAIN
     Dosage: UNK, QD
     Route: 065
     Dates: start: 20091013, end: 20100613
  4. HALDOL [Suspect]
     Active Substance: HALOPERIDOL
     Indication: DEPRESSION
     Dosage: 1 MG, QD
     Route: 048
     Dates: end: 20100218
  5. OMEPRAZOL E [Concomitant]
     Active Substance: OMEPRAZOLE
     Indication: GASTRITIS PROPHYLAXIS
     Dosage: 20 MG, QD
     Route: 048
  6. VALDOXAN [Suspect]
     Active Substance: AGOMELATINE
     Indication: DEPRESSION
     Dosage: 25 MG, UNK
     Route: 048
     Dates: end: 20100218
  7. MORPHINE SULFATE. [Suspect]
     Active Substance: MORPHINE SULFATE
     Dosage: 300 MG, QD
     Route: 048
     Dates: end: 20100613
  8. HYDROXYUREA. [Suspect]
     Active Substance: HYDROXYUREA
     Indication: SICKLE CELL ANAEMIA
     Dosage: 1000 MG, UNK
     Route: 048
     Dates: start: 20091013, end: 20100218
  9. MELPERONE HCL [Suspect]
     Active Substance: MELPERONE HYDROCHLORIDE
     Indication: DEPRESSION
     Dosage: 1 DF, QD
     Route: 048
     Dates: end: 20100218

REACTIONS (6)
  - Caesarean section [Unknown]
  - Sickle cell anaemia with crisis [Unknown]
  - Pyrexia [Unknown]
  - Premature delivery [Unknown]
  - Maternal exposure during pregnancy [Recovered/Resolved]
  - Polyhydramnios [Unknown]
